FAERS Safety Report 9553060 (Version 3)
Quarter: 2013Q4

REPORT INFORMATION
  Report Type: Report from Study
  Country: KR (occurrence: KR)
  Receive Date: 20130925
  Receipt Date: 20131223
  Transmission Date: 20140711
  Serious: No
  Sender: FDA-Public Use
  Company Number: PHHY2013KR056294

PATIENT
  Age: 29 Year
  Sex: Male

DRUGS (5)
  1. AMN107 [Suspect]
     Indication: CHRONIC MYELOID LEUKAEMIA
     Dosage: 800 MG, PER DAY
     Route: 048
     Dates: start: 20120814
  2. FLUOROMETHOLONE [Concomitant]
     Indication: BLEPHARITIS
     Route: 047
     Dates: start: 20120824
  3. LEVOFLOXACIN [Concomitant]
     Indication: BLEPHARITIS
     Route: 047
     Dates: start: 20120824
  4. TETRACYCLINE [Concomitant]
     Indication: BLEPHARITIS
     Dosage: 1000 MG, UNK
     Route: 048
     Dates: start: 20120824, end: 20120913
  5. ERYTHROMYCIN LACTOBIONATE [Concomitant]
     Indication: BLEPHARITIS
     Route: 047
     Dates: start: 20120816

REACTIONS (2)
  - Rash [Not Recovered/Not Resolved]
  - Dry eye [Recovered/Resolved]
